FAERS Safety Report 5954193-5 (Version None)
Quarter: 2008Q4

REPORT INFORMATION
  Report Type: 
  Country: None (occurrence: None)
  Receive Date: 20081117
  Receipt Date: 20081113
  Transmission Date: 20090506
  Serious: Yes (Hospitalization)
  Sender: FDA-Public Use
  Company Number: IN-BRISTOL-MYERS SQUIBB COMPANY-14405880

PATIENT
  Age: 62 Year
  Sex: Male
  Weight: 55 kg

DRUGS (10)
  1. CARBOPLATIN [Suspect]
     Indication: NON-SMALL CELL LUNG CANCER
     Dosage: 2.5 DOSAGEFORM = 2.5 AUC ON D1,8,22,39,43. THERAPY STARTED ON 21AUG08.
     Route: 042
     Dates: start: 20081017, end: 20081017
  2. ALIMTA [Suspect]
     Indication: NON-SMALL CELL LUNG CANCER
     Dosage: PEMETREXED VIAL. 250MG/M2 ON DAY1,22,43. THERAPY STARTED ON 21AUG08.
     Route: 042
     Dates: start: 20081017, end: 20081017
  3. RADIATION THERAPY [Suspect]
     Indication: NON-SMALL CELL LUNG CANCER
     Dosage: 2 DOSAGEFORM = 2 CENTIGRAY ON DAY1-49. THERAPY STARTED ON 21AUG08.
     Dates: start: 20081023, end: 20081023
  4. FOLIC ACID [Concomitant]
     Indication: SUPPLEMENTATION THERAPY
  5. VITAMIN B-12 [Concomitant]
     Indication: SUPPLEMENTATION THERAPY
  6. OXETACAINE [Concomitant]
     Indication: GASTRITIS
  7. ALUMINIUM [Concomitant]
     Indication: GASTRITIS
     Dosage: ALUMINIUM HYDROCHLORIDE
     Dates: start: 20080902
  8. ENSURE [Concomitant]
     Indication: SUPPLEMENTATION THERAPY
     Dosage: ENSURE POWDER
  9. FLUCONAZOLE [Concomitant]
     Indication: ANTIFUNGAL TREATMENT
     Dates: start: 20080919
  10. PANTOPRAZOLE SODIUM [Concomitant]
     Indication: HYPERCHLORHYDRIA
     Dates: start: 20080919

REACTIONS (1)
  - MEDIASTINITIS [None]
